FAERS Safety Report 15942268 (Version 1)
Quarter: 2019Q1

REPORT INFORMATION
  Report Type: Spontaneous
  Country: CZ (occurrence: CZ)
  Receive Date: 20190209
  Receipt Date: 20190209
  Transmission Date: 20190417
  Serious: Yes (Life-Threatening, Other)
  Sender: FDA-Public Use
  Company Number: CZ-TEVA-2019-CZ-1008708

PATIENT
  Age: 11 Week
  Sex: Female
  Weight: 5.23 kg

DRUGS (1)
  1. SUMAMED 20MG/ML PRASEK PRO PEROR?LN? SUSPENZI [Suspect]
     Active Substance: AZITHROMYCIN ANHYDROUS
     Indication: ATYPICAL PNEUMONIA
     Dosage: 20 MILLIGRAM DAILY;
     Route: 048
     Dates: start: 20190109, end: 20190114

REACTIONS (4)
  - Vomiting [Unknown]
  - Choking [Recovered/Resolved]
  - Tongue oedema [Recovered/Resolved]
  - Cyanosis [Recovered/Resolved]

NARRATIVE: CASE EVENT DATE: 20190115
